FAERS Safety Report 25756393 (Version 1)
Quarter: 2025Q3

REPORT INFORMATION
  Report Type: Report from Study
  Country: EU (occurrence: EU)
  Receive Date: 20250903
  Receipt Date: 20250903
  Transmission Date: 20251020
  Serious: Yes (Hospitalization)
  Sender: TEVA
  Company Number: None

PATIENT
  Age: 69 Year
  Sex: Female

DRUGS (8)
  1. AMOXICILLIN\CLAVULANIC ACID [Suspect]
     Active Substance: AMOXICILLIN\CLAVULANIC ACID
     Indication: Ear infection
     Dosage: 1 TABLET / 8 H, 875 MG/125 MG 20 TABLETS
     Route: 048
     Dates: start: 20250512, end: 20250516
  2. ATORVASTATIN [Concomitant]
     Active Substance: ATORVASTATIN
     Indication: Product used for unknown indication
     Dosage: 1 TABLET / 24 H - 28 TABLETS
     Route: 048
     Dates: start: 20240918, end: 20250812
  3. AMITRIPTYLINE HYDROCHLORIDE [Concomitant]
     Active Substance: AMITRIPTYLINE HYDROCHLORIDE
     Indication: Product used for unknown indication
     Dosage: 1 TABLET / 12 H, 60 TABLETS
     Route: 048
     Dates: start: 20250305, end: 20250812
  4. OMEPRAZOLE [Concomitant]
     Active Substance: OMEPRAZOLE
     Indication: Product used for unknown indication
     Dosage: 1 CAPSULE / 12 H, 56 CAPSULES
     Route: 048
     Dates: start: 20250305, end: 20250812
  5. ASPIRIN [Concomitant]
     Active Substance: ASPIRIN
     Indication: Product used for unknown indication
     Dosage: 1 TABLET / 24 H, 30 TABLETS
     Route: 048
     Dates: start: 20250305, end: 20250812
  6. Acetilciste?na [Concomitant]
     Indication: Product used for unknown indication
     Dosage: 1 TABLET / 24 H,10 EFFERVESCENT TABLETS
     Route: 048
     Dates: start: 20250512, end: 20250522
  7. FLUOXETINE HYDROCHLORIDE [Concomitant]
     Active Substance: FLUOXETINE HYDROCHLORIDE
     Indication: Product used for unknown indication
     Dosage: 1 CAPSULE / 12 H, 28 CAPSULES
     Route: 048
     Dates: start: 20250305, end: 20250512
  8. LORAZEPAM [Concomitant]
     Active Substance: LORAZEPAM
     Indication: Product used for unknown indication
     Dosage: 1 TABLET / 24 H, 50 TABLETS
     Route: 048
     Dates: start: 20250505, end: 20250812

REACTIONS (3)
  - Hypertransaminasaemia [Recovered/Resolved]
  - Jaundice [Recovered/Resolved]
  - Choluria [Recovered/Resolved]

NARRATIVE: CASE EVENT DATE: 20250516
